FAERS Safety Report 8454914-6 (Version None)
Quarter: 2012Q2

REPORT INFORMATION
  Report Type: 
  Country: None (occurrence: None)
  Receive Date: 20120621
  Receipt Date: 20120618
  Transmission Date: 20120825
  Serious: No
  Sender: FDA-Public Use
  Company Number: US-PFIZER INC-2012127849

PATIENT
  Sex: Female

DRUGS (3)
  1. SUTENT [Suspect]
     Indication: METASTATIC RENAL CELL CARCINOMA
     Dosage: 50 MG DAILY, X 28 DAYS Q 42 DAYS
     Route: 048
     Dates: start: 20090323, end: 20090409
  2. SUTENT [Suspect]
     Dosage: 37.5 MG, (12.5 MG CAP + 25MG CAP) DAILY X 28 DAYS Q 42 DAYS
     Dates: start: 20090507, end: 20090603
  3. SUTENT [Suspect]
     Dosage: 25 MG, (25 MG, DAILY X 28 DAYS Q 42 DAYS)
     Dates: start: 20090618

REACTIONS (7)
  - NAUSEA [None]
  - CONSTIPATION [None]
  - OROPHARYNGEAL PAIN [None]
  - DECREASED APPETITE [None]
  - DIARRHOEA [None]
  - DYSGEUSIA [None]
  - RASH PRURITIC [None]
